FAERS Safety Report 18197165 (Version 1)
Quarter: 2020Q3

REPORT INFORMATION
  Report Type: Spontaneous
  Country: GB (occurrence: GB)
  Receive Date: 20200826
  Receipt Date: 20200826
  Transmission Date: 20201103
  Serious: Yes (Life-Threatening, Hospitalization, Disabling)
  Sender: FDA-Public Use
  Company Number: GB-EMCURE PHARMACEUTICALS LTD-2018-EPL-002026

PATIENT
  Age: 72 Year

DRUGS (12)
  1. DORZOLAMIDE [Concomitant]
     Active Substance: DORZOLAMIDE
     Dosage: 2 GTT DAILY; IN LEFT EYE
     Route: 050
  2. LANSOPRAZOLE. [Concomitant]
     Active Substance: LANSOPRAZOLE
     Dosage: 30 MILLIGRAM DAILY; IN THE MORNING.
     Route: 065
  3. PREGABALIN. [Concomitant]
     Active Substance: PREGABALIN
     Dosage: 100 MILLIGRAM DAILY; AT NIGHT ? DOSE REDUCED.
  4. METFORMIN [Suspect]
     Active Substance: METFORMIN HYDROCHLORIDE
     Indication: PRODUCT USED FOR UNKNOWN INDICATION
     Dosage: 3000 MILLIGRAM DAILY; (2 IN THE MORNING, 2 AT LUNCH AND 2 AT TEA.)
     Route: 065
  5. LATANOPROST. [Concomitant]
     Active Substance: LATANOPROST
     Dosage: 2.5 ML DAILY; ONE DROP, 50 MICROGRAM/ML, USED AT NIGHT, IN THE AFFECTED EYE, 2.5ML IN THE RIGHT EYE.
     Route: 050
  6. SIMVASTATIN. [Concomitant]
     Active Substance: SIMVASTATIN
     Dosage: 40 MILLIGRAM DAILY; AT NIGHT.
     Route: 065
  7. DAPAGLIFLOZIN. [Suspect]
     Active Substance: DAPAGLIFLOZIN
     Indication: PRODUCT USED FOR UNKNOWN INDICATION
     Dosage: 10 MILLIGRAM DAILY;
     Route: 065
  8. FOLIC ACID. [Concomitant]
     Active Substance: FOLIC ACID
     Dosage: 5 MILLIGRAM DAILY;
     Route: 065
  9. REPAGLINIDE. [Concomitant]
     Active Substance: REPAGLINIDE
     Dosage: 2 MILLIGRAM DAILY; WITH MEALS AS DIRECTED BY DIABETES TEAM.
  10. ACETYLSALICYLIC ACID [Concomitant]
     Active Substance: ASPIRIN
     Dosage: 75 MILLIGRAM DAILY;
  11. HYDROXOCOBALAMIN [Concomitant]
     Active Substance: HYDROXOCOBALAMIN
     Dosage: 1 DOSAGE FORM, 1 DOSE PER 3M,  (1 MG/ML SOLUTION.)
     Route: 030
  12. TIMOLOL. [Concomitant]
     Active Substance: TIMOLOL
     Dosage: 2 GTT DAILY; IN LEFT EYE
     Route: 050

REACTIONS (4)
  - Metabolic acidosis [Recovered/Resolved]
  - Dehydration [Recovered/Resolved]
  - Acute kidney injury [Recovered/Resolved]
  - Arrhythmia [Recovered/Resolved]

NARRATIVE: CASE EVENT DATE: 20171011
